FAERS Safety Report 10648285 (Version 1)
Quarter: 2014Q4

REPORT INFORMATION
  Report Type: Spontaneous
  Country: FR (occurrence: FR)
  Receive Date: 20141212
  Receipt Date: 20141212
  Transmission Date: 20150529
  Serious: Yes (Hospitalization)
  Sender: FDA-Public Use
  Company Number: FR-ASTRAZENECA-2014SE94004

PATIENT
  Sex: Female

DRUGS (10)
  1. FIXICAL [Concomitant]
     Active Substance: CALCIUM CARBONATE
  2. NOREPINEPHRINE [Concomitant]
     Active Substance: NOREPINEPHRINE\NOREPINEPHRINE BITARTRATE
     Dosage: 12 MG PER HOUR
     Dates: start: 201409, end: 201409
  3. AMIKLIN [Concomitant]
     Active Substance: AMIKACIN SULFATE
     Dates: start: 20140915, end: 20140917
  4. CASPOFUNGINE BASE [Suspect]
     Active Substance: CASPOFUNGIN
     Route: 065
     Dates: start: 20140917
  5. ELEVIT [Concomitant]
     Active Substance: FOLIC ACID\IRON\MINERALS\VITAMINS
  6. MERONEM [Suspect]
     Active Substance: MEROPENEM
     Route: 042
     Dates: start: 20140925
  7. VITAMIN B12 [Concomitant]
     Active Substance: CYANOCOBALAMIN
  8. TAZOCILLINE [Concomitant]
     Active Substance: PIPERACILLIN SODIUM\TAZOBACTAM SODIUM
     Dates: start: 20140915, end: 20140927
  9. VITAMIN B9 [Concomitant]
  10. GENTAMYCINE [Concomitant]
     Active Substance: GENTAMICIN
     Dates: start: 20140917

REACTIONS (5)
  - Cholestasis [Unknown]
  - Endocarditis [Unknown]
  - Renal failure [Unknown]
  - Cell death [Unknown]
  - Pseudomonal sepsis [Unknown]

NARRATIVE: CASE EVENT DATE: 20141006
